FAERS Safety Report 15061275 (Version 1)
Quarter: 2018Q2

REPORT INFORMATION
  Report Type: Spontaneous
  Country: US (occurrence: US)
  Receive Date: 20180625
  Receipt Date: 20180625
  Transmission Date: 20180711
  Serious: Yes (Other)
  Sender: FDA-Public Use
  Company Number: US-ASTRAZENECA-2018SE80588

PATIENT
  Sex: Female

DRUGS (2)
  1. QUETIAPINE. [Suspect]
     Active Substance: QUETIAPINE
     Dosage: CUT MEDICATION TAKING JUST ONE 200MG PILL AT NIGHT
     Route: 048
  2. QUETIAPINE. [Suspect]
     Active Substance: QUETIAPINE
     Dosage: 200MG ONE TABLET IN THE MORNING AND THREE TABLETS AT NIGHT
     Route: 048

REACTIONS (6)
  - Seizure [Unknown]
  - Aura [Unknown]
  - Confusional state [Unknown]
  - Dysarthria [Unknown]
  - Memory impairment [Not Recovered/Not Resolved]
  - Intentional product misuse [Not Recovered/Not Resolved]
